FAERS Safety Report 25137617 (Version 4)
Quarter: 2025Q3

REPORT INFORMATION
  Report Type: Report from Study
  Country: US (occurrence: US)
  Receive Date: 20250329
  Receipt Date: 20250706
  Transmission Date: 20251020
  Serious: Yes (Hospitalization, Other)
  Sender: ABBVIE
  Company Number: US-ABBVIE-6199302

PATIENT
  Age: 83 Year
  Sex: Female
  Weight: 68.038 kg

DRUGS (1)
  1. CREON [Suspect]
     Active Substance: PANCRELIPASE AMYLASE\PANCRELIPASE LIPASE\PANCRELIPASE PROTEASE
     Indication: Pancreatic failure
     Route: 048
     Dates: start: 2023

REACTIONS (7)
  - Eye movement disorder [Recovering/Resolving]
  - Memory impairment [Unknown]
  - Fatigue [Unknown]
  - Cerebrovascular accident [Unknown]
  - Pancreatic disorder [Unknown]
  - Illness [Unknown]
  - Amnesia [Unknown]

NARRATIVE: CASE EVENT DATE: 20250301
